FAERS Safety Report 4615242-X (Version None)
Quarter: 2005Q1

REPORT INFORMATION
  Report Type: 
  Country: None (occurrence: None)
  Receive Date: 20050317
  Receipt Date: 20050308
  Transmission Date: 20050727
  Serious: Yes (Hospitalization, Disabling)
  Sender: FDA-Public Use
  Company Number: 2005-02-1210

PATIENT
  Age: 55 Year
  Sex: Female
  Weight: 56 kg

DRUGS (5)
  1. INTRON A [Suspect]
     Indication: HEPATITIS C
     Dosage: 10-6MU 7-3QD* INTRAMUSCULAR
     Route: 030
     Dates: start: 20030129, end: 20030212
  2. INTRON A [Suspect]
     Indication: HEPATITIS C
     Dosage: 10-6MU 7-3QD* INTRAMUSCULAR
     Route: 030
     Dates: start: 20030214, end: 20030701
  3. INTRON A [Suspect]
     Indication: HEPATITIS C
     Dosage: 10-6MU 7-3QD* INTRAMUSCULAR
     Route: 030
     Dates: start: 20030726, end: 20031107
  4. REBETOL [Suspect]
     Indication: HEPATITIS C
     Dosage: 800 MG* ORAL
     Route: 048
     Dates: start: 20030129, end: 20030205
  5. REBETOL [Suspect]
     Indication: HEPATITIS C
     Dosage: 800 MG* ORAL
     Route: 048
     Dates: start: 20030203, end: 20030728

REACTIONS (5)
  - ANOREXIA [None]
  - DIABETES MELLITUS INSULIN-DEPENDENT [None]
  - DIABETIC KETOACIDOSIS [None]
  - VOMITING [None]
  - WEIGHT DECREASED [None]
